FAERS Safety Report 11402784 (Version 1)
Quarter: 2015Q3

REPORT INFORMATION
  Report Type: Spontaneous
  Country: US (occurrence: US)
  Receive Date: 20150821
  Receipt Date: 20150821
  Transmission Date: 20151125
  Serious: No
  Sender: FDA-Public Use
  Company Number: US-ROCHE-1375141

PATIENT
  Sex: Female

DRUGS (5)
  1. PEGASYS [Suspect]
     Active Substance: PEGINTERFERON ALFA-2A
     Route: 065
     Dates: start: 2003
  2. TELAPREVIR [Concomitant]
     Active Substance: TELAPREVIR
     Indication: CHRONIC HEPATITIS C
     Route: 065
     Dates: start: 20130822, end: 20131115
  3. COPEGUS [Suspect]
     Active Substance: RIBAVIRIN
     Route: 065
  4. COPEGUS [Suspect]
     Active Substance: RIBAVIRIN
     Indication: CHRONIC HEPATITIS C
     Dosage: DIVIDED DOSES
     Route: 048
     Dates: start: 20130822
  5. PEGASYS [Suspect]
     Active Substance: PEGINTERFERON ALFA-2A
     Indication: CHRONIC HEPATITIS C
     Route: 058
     Dates: start: 20130822

REACTIONS (7)
  - Tremor [Not Recovered/Not Resolved]
  - Red blood cell count decreased [Unknown]
  - Loss of consciousness [Unknown]
  - Fatigue [Not Recovered/Not Resolved]
  - White blood cell count decreased [Unknown]
  - Food poisoning [Unknown]
  - Vertigo [Not Recovered/Not Resolved]
